FAERS Safety Report 14738035 (Version 2)
Quarter: 2018Q2

REPORT INFORMATION
  Report Type: Spontaneous
  Country: PL (occurrence: PL)
  Receive Date: 20180409
  Receipt Date: 20180507
  Transmission Date: 20180711
  Serious: Yes (Other)
  Sender: FDA-Public Use
  Company Number: PL-PFIZER INC-2018140406

PATIENT
  Age: 35 Year
  Sex: Female
  Weight: 89 kg

DRUGS (7)
  1. HERCEPTIN [Suspect]
     Active Substance: TRASTUZUMAB
     Indication: HER-2 POSITIVE BREAST CANCER
     Dosage: UNK (FIRST LINE OF A GENERALIZED DISEASE)
     Route: 042
     Dates: start: 20150427
  2. HERCEPTIN [Suspect]
     Active Substance: TRASTUZUMAB
     Dosage: UNK, EVERY 3 WEEKS (712 MG FIRST ADMINISTRATION, 534MG NEXT)
     Route: 042
     Dates: start: 20170320, end: 20170918
  3. EUTHYROX N [Concomitant]
     Active Substance: LEVOTHYROXINE SODIUM
     Indication: HYPOTHYROIDISM
     Dosage: 0.5 TABLETY DAILY
  4. PERJETA [Suspect]
     Active Substance: PERTUZUMAB
     Indication: HER-2 POSITIVE BREAST CANCER
     Dosage: UNK, EVERY 3 WEEKS(840 MG/FIRST DOSE, THEN NEXT 420MG INFUSION)
     Dates: start: 20170320, end: 20170918
  5. ZOLEDRONIC ACID [Concomitant]
     Active Substance: ZOLEDRONIC ACID
     Indication: HER-2 POSITIVE BREAST CANCER
     Dosage: UNK
  6. PACLITAXEL. [Suspect]
     Active Substance: PACLITAXEL
     Indication: HER-2 POSITIVE BREAST CANCER
     Dosage: UNK, 8 ADMINISTRATIONS
  7. DOCETAXEL. [Suspect]
     Active Substance: DOCETAXEL
     Indication: HER-2 POSITIVE BREAST CANCER
     Dosage: 150 MG, EVERY 3 WEEKS
     Dates: start: 20170320, end: 20170710

REACTIONS (5)
  - Polyneuropathy [Recovered/Resolved]
  - Neoplasm progression [Unknown]
  - Bronchitis [Unknown]
  - Bone pain [Unknown]
  - Cough [Unknown]

NARRATIVE: CASE EVENT DATE: 20170701
